FAERS Safety Report 5595781-8 (Version None)
Quarter: 2008Q1

REPORT INFORMATION
  Report Type: 
  Country: None (occurrence: None)
  Receive Date: 20080118
  Receipt Date: 20080109
  Transmission Date: 20080703
  Serious: Yes (Other)
  Sender: FDA-Public Use
  Company Number: B0502586A

PATIENT
  Age: 21 Year
  Sex: Female
  Weight: 59 kg

DRUGS (1)
  1. PAROXETINE [Suspect]
     Indication: SEASONAL AFFECTIVE DISORDER
     Dosage: 20MG PER DAY
     Route: 048
     Dates: start: 20070901

REACTIONS (7)
  - DIARRHOEA [None]
  - EMOTIONAL DISORDER [None]
  - FATIGUE [None]
  - HALLUCINATION [None]
  - HYPERHIDROSIS [None]
  - TINNITUS [None]
  - YAWNING [None]
